FAERS Safety Report 15440544 (Version 1)
Quarter: 2018Q3

REPORT INFORMATION
  Report Type: Spontaneous
  Country: US (occurrence: US)
  Receive Date: 20180928
  Receipt Date: 20180928
  Transmission Date: 20181010
  Serious: No
  Sender: FDA-Public Use
  Company Number: US-009507513-1809USA012772

PATIENT
  Sex: Female

DRUGS (1)
  1. BELSOMRA [Suspect]
     Active Substance: SUVOREXANT
     Route: 048

REACTIONS (5)
  - Pharyngeal ulceration [Unknown]
  - Dry mouth [Unknown]
  - Headache [Unknown]
  - Mouth ulceration [Unknown]
  - Dysphagia [Unknown]
